FAERS Safety Report 10992993 (Version 1)
Quarter: 2015Q2

REPORT INFORMATION
  Report Type: Other
  Country: IT (occurrence: IT)
  Receive Date: 20150406
  Receipt Date: 20150406
  Transmission Date: 20150821
  Serious: Yes (Other)
  Sender: FDA-Public Use
  Company Number: IT-MYLANLABS-2015M1009975

PATIENT

DRUGS (1)
  1. LEVOFLOXACINA [Suspect]
     Active Substance: LEVOFLOXACIN
     Indication: BRONCHITIS
     Dosage: 500 MG DAILY
     Route: 048
     Dates: start: 20150209, end: 20150211

REACTIONS (2)
  - Tendon pain [Not Recovered/Not Resolved]
  - Joint lock [Not Recovered/Not Resolved]

NARRATIVE: CASE EVENT DATE: 20150210
